FAERS Safety Report 23981786 (Version 1)
Quarter: 2024Q2

REPORT INFORMATION
  Report Type: Spontaneous
  Country: NL (occurrence: NL)
  Receive Date: 20240617
  Receipt Date: 20240617
  Transmission Date: 20240716
  Serious: Yes (Other)
  Sender: FDA-Public Use
  Company Number: None

PATIENT
  Age: 56 Year
  Sex: Male
  Weight: 75 kg

DRUGS (2)
  1. PREGABALIN [Suspect]
     Active Substance: PREGABALIN
     Indication: Pain
     Dosage: 1 TABLET 2-3 TIMES A DAY?CAPSULE / BRAND NAME NOT SPECIFIED
     Route: 065
     Dates: start: 20210225
  2. LORAZEPAM [Suspect]
     Active Substance: LORAZEPAM
     Indication: Restlessness
     Dosage: 1 PIECE 3 TIMES A DAY?? / BRAND NAME NOT SPECIFIED
     Route: 065
     Dates: start: 20210419

REACTIONS (2)
  - Delusion [Unknown]
  - Suspiciousness [Unknown]
